FAERS Safety Report 7214248-4 (Version None)
Quarter: 2011Q1

REPORT INFORMATION
  Report Type: 
  Country: None (occurrence: None)
  Receive Date: 20110107
  Receipt Date: 20101216
  Transmission Date: 20110831
  Serious: No
  Sender: FDA-Public Use
  Company Number: US-B.I. PHARMACEUTICALS,INC./RIDGEFIELD-2010-BP-14855BP

PATIENT
  Age: 87 Year
  Sex: Female

DRUGS (6)
  1. SYNTHROID [Concomitant]
     Indication: HYPOTHYROIDISM
  2. XANAX [Concomitant]
     Indication: AFFECTIVE DISORDER
  3. NORVASC [Concomitant]
     Indication: HYPERTENSION
  4. DEPAKOTE [Concomitant]
     Indication: AFFECTIVE DISORDER
  5. PRADAXA [Suspect]
     Indication: ATRIAL FIBRILLATION
     Dosage: 300 MG
     Route: 048
     Dates: start: 20101214
  6. LOPRESSOR [Concomitant]
     Indication: HYPERTENSION

REACTIONS (2)
  - DEFAECATION URGENCY [None]
  - CHEST PAIN [None]
